FAERS Safety Report 7071735-X (Version None)
Quarter: 2010Q4

REPORT INFORMATION
  Report Type: 
  Country: None (occurrence: None)
  Receive Date: 20101029
  Receipt Date: 20091014
  Transmission Date: 20110411
  Serious: No
  Sender: FDA-Public Use
  Company Number: A0811790A

PATIENT
  Age: 69 Year
  Sex: Male

DRUGS (10)
  1. ADVAIR DISKUS 100/50 [Suspect]
     Indication: ASTHMA
     Dosage: 1PUFF TWICE PER DAY
     Route: 055
     Dates: start: 20040101
  2. QVAR 40 [Concomitant]
  3. DEPAKOTE ER [Concomitant]
  4. ALBUTEROL [Concomitant]
  5. PRAVACHOL [Concomitant]
  6. LASIX [Concomitant]
  7. PLAVIX [Concomitant]
  8. ALTACE [Concomitant]
  9. PREDNISONE [Concomitant]
  10. SINGULAIR [Concomitant]

REACTIONS (1)
  - DYSPHONIA [None]
